FAERS Safety Report 7829281-9 (Version None)
Quarter: 2011Q4

REPORT INFORMATION
  Report Type: 
  Country: None (occurrence: None)
  Receive Date: 20111020
  Receipt Date: 20111006
  Transmission Date: 20120403
  Serious: Yes (Hospitalization)
  Sender: FDA-Public Use
  Company Number: CH-BAYER-2011-095217

PATIENT
  Age: 76 Year
  Sex: Female

DRUGS (4)
  1. ASPIRIN [Suspect]
     Indication: ACUTE MYOCARDIAL INFARCTION
     Dosage: 100 MG, QID
     Route: 048
     Dates: start: 20110801, end: 20110824
  2. SINTROM [Suspect]
     Indication: ACUTE MYOCARDIAL INFARCTION
     Dosage: UNK
     Route: 048
     Dates: start: 20110801, end: 20110824
  3. CONCOR [Concomitant]
     Dosage: UNK
  4. EZETIMIBE [Concomitant]
     Dosage: UNK

REACTIONS (1)
  - MUSCLE HAEMORRHAGE [None]
